FAERS Safety Report 16773601 (Version 1)
Quarter: 2019Q3

REPORT INFORMATION
  Report Type: Spontaneous
  Country: AT (occurrence: AT)
  Receive Date: 20190904
  Receipt Date: 20190904
  Transmission Date: 20191005
  Serious: Yes (Other)
  Sender: FDA-Public Use
  Company Number: PHHY2019AT200502

PATIENT

DRUGS (3)
  1. CLAVAMOX [Suspect]
     Active Substance: AMOXICILLIN\CLAVULANATE POTASSIUM
     Dosage: (3 - 4 DAYS 3X DAILY, THEN 2X DAILY)
     Route: 065
  2. CIPROMAX [Suspect]
     Active Substance: CIPROFLOXACIN HYDROCHLORIDE
     Indication: PRODUCT USED FOR UNKNOWN INDICATION
     Dosage: UNK
     Route: 065
  3. CLAVAMOX [Suspect]
     Active Substance: AMOXICILLIN\CLAVULANATE POTASSIUM
     Indication: BORRELIA INFECTION
     Dosage: 1 G, BID (2 G 1 DAY)
     Route: 065
     Dates: start: 201906, end: 201907

REACTIONS (3)
  - Blood pressure increased [Unknown]
  - Cardiac disorder [Unknown]
  - Muscle spasms [Recovering/Resolving]
